FAERS Safety Report 19231503 (Version 4)
Quarter: 2021Q3

REPORT INFORMATION
  Report Type: Spontaneous
  Country: US (occurrence: US)
  Receive Date: 20210507
  Receipt Date: 20210817
  Transmission Date: 20211014
  Serious: Yes (Hospitalization, Other)
  Sender: FDA-Public Use
  Company Number: US-PFIZER INC-2021476939

PATIENT
  Age: 57 Year
  Sex: Female

DRUGS (1)
  1. XELJANZ [Suspect]
     Active Substance: TOFACITINIB CITRATE
     Dosage: 5 MG
     Route: 048
     Dates: start: 202103

REACTIONS (7)
  - Drug ineffective [Unknown]
  - Oropharyngeal pain [Unknown]
  - Swelling [Unknown]
  - Dysphagia [Not Recovered/Not Resolved]
  - Fluid retention [Unknown]
  - COVID-19 [Not Recovered/Not Resolved]
  - Cough [Unknown]

NARRATIVE: CASE EVENT DATE: 202103
